FAERS Safety Report 8799194 (Version 1)
Quarter: 2012Q4

REPORT INFORMATION
  Report Type: 
  Country: FR (occurrence: FR)
  Receive Date: 20120920
  Receipt Date: 20120920
  Transmission Date: 20130627
  Serious: Yes (Hospitalization)
  Sender: FDA-Public Use
  Company Number: FR-BAXTER-2012BAX017061

PATIENT
  Age: 77 Year
  Sex: Female

DRUGS (7)
  1. ENDOXAN 2000 MG, LYOPHILISAT POUR SOLUTION INJECTABLE [Suspect]
     Indication: LYMPHOMA NOS
     Route: 042
     Dates: start: 20110429, end: 20110819
  2. DOXORUBICINE [Suspect]
     Indication: LYMPHOMA NOS
     Route: 042
     Dates: start: 20110429, end: 20110819
  3. MABTHERA [Suspect]
     Indication: LYMPHOMA NOS
     Route: 042
     Dates: start: 20110429
  4. MABTHERA [Suspect]
     Route: 042
     Dates: end: 20110929
  5. MABTHERA [Suspect]
     Route: 042
     Dates: start: 20111125
  6. MABTHERA [Suspect]
     Route: 042
     Dates: start: 20120118
  7. VINCRISTINE [Suspect]
     Indication: LYMPHOMA NOS
     Route: 042
     Dates: start: 20110429, end: 20110819

REACTIONS (1)
  - Neuropathy peripheral [Recovered/Resolved]
